FAERS Safety Report 6548785-2 (Version None)
Quarter: 2010Q1

REPORT INFORMATION
  Report Type: 
  Country: None (occurrence: None)
  Receive Date: 20100124
  Receipt Date: 20091119
  Transmission Date: 20100710
  Serious: No
  Sender: FDA-Public Use
  Company Number: US-ALLERGAN-0916065US

PATIENT
  Sex: Female

DRUGS (4)
  1. RESTASIS [Suspect]
     Indication: DRY EYE
     Dosage: 1 GTT, QD
     Route: 047
     Dates: start: 20091104, end: 20091110
  2. VITAMIN D [Concomitant]
  3. HYDROXYCHLOROQUINE SULFATE [Concomitant]
  4. SALAGEN [Concomitant]

REACTIONS (5)
  - CHEILITIS [None]
  - LIP PAIN [None]
  - LIP SWELLING [None]
  - ORAL PAIN [None]
  - SENSITIVITY OF TEETH [None]
